FAERS Safety Report 25100684 (Version 2)
Quarter: 2025Q1

REPORT INFORMATION
  Report Type: Spontaneous
  Country: US (occurrence: US)
  Receive Date: 20250320
  Receipt Date: 20250325
  Transmission Date: 20250408
  Serious: Yes (Disabling)
  Sender: PURDUE
  Company Number: US-PURDUE PHARMA-USA-2025-0316137

PATIENT
  Age: 74 Year
  Sex: Male
  Weight: 122 kg

DRUGS (2)
  1. OXYCODONE HYDROCHLORIDE [Suspect]
     Active Substance: OXYCODONE HYDROCHLORIDE
     Indication: Pain
     Dosage: 20 MILLIGRAM, BID
     Route: 048
     Dates: start: 20250315, end: 20250316
  2. OXYCODONE HYDROCHLORIDE [Suspect]
     Active Substance: OXYCODONE HYDROCHLORIDE
     Indication: Pain in extremity
     Dosage: 20 MILLIGRAM, Q4H
     Route: 048
     Dates: start: 20250315, end: 20250316

REACTIONS (4)
  - Inadequate analgesia [Not Recovered/Not Resolved]
  - Product dosage form issue [Not Recovered/Not Resolved]
  - Product size issue [Not Recovered/Not Resolved]
  - Suspected counterfeit product [Unknown]

NARRATIVE: CASE EVENT DATE: 20250315
